FAERS Safety Report 4845291-8 (Version None)
Quarter: 2005Q4

REPORT INFORMATION
  Report Type: 
  Country: None (occurrence: None)
  Receive Date: 20051205
  Receipt Date: 20051013
  Transmission Date: 20060501
  Serious: Yes (Other)
  Sender: FDA-Public Use
  Company Number: CA-GLAXOSMITHKLINE-A0578222A

PATIENT
  Age: 53 Year
  Sex: Male
  Weight: 95.7 kg

DRUGS (7)
  1. AVANDIA [Suspect]
     Dosage: 4MG PER DAY
     Route: 048
     Dates: start: 20050101, end: 20051012
  2. NPH INSULIN [Concomitant]
     Dosage: 24UNIT TWICE PER DAY
     Route: 065
  3. LIPITOR [Concomitant]
     Dosage: 10MG PER DAY
  4. LIPIDIL [Concomitant]
     Dosage: 200MG PER DAY
  5. ALTACE [Concomitant]
     Indication: HYPERTENSION
     Dosage: 10MG PER DAY
  6. ASPIRIN [Concomitant]
     Dosage: 81MG PER DAY
  7. TORONTO INSULIN [Concomitant]
     Dosage: 20UNIT TWICE PER DAY

REACTIONS (1)
  - HIGH DENSITY LIPOPROTEIN DECREASED [None]
